FAERS Safety Report 7353996-2 (Version None)
Quarter: 2011Q1

REPORT INFORMATION
  Report Type: 
  Country: None (occurrence: None)
  Receive Date: 20110315
  Receipt Date: 20110303
  Transmission Date: 20110831
  Serious: Yes (Other)
  Sender: FDA-Public Use
  Company Number: PHHY2011AU16892

PATIENT
  Sex: Male

DRUGS (1)
  1. VALPROATE SODIUM [Suspect]
     Dosage: UNK
     Route: 048
     Dates: start: 20110302, end: 20110303

REACTIONS (2)
  - ANAL HAEMORRHAGE [None]
  - DIARRHOEA [None]
